FAERS Safety Report 9825166 (Version 2)
Quarter: 2014Q1

REPORT INFORMATION
  Report Type: Report from Study
  Country: CN (occurrence: CN)
  Receive Date: 20140117
  Receipt Date: 20140221
  Transmission Date: 20141002
  Serious: Yes (Other)
  Sender: FDA-Public Use
  Company Number: CN-ROCHE-1334127

PATIENT
  Age: 67 Year
  Sex: Male

DRUGS (2)
  1. PEG-INTERFERON ALFA 2A [Suspect]
     Indication: CHRONIC HEPATITIS C
     Dosage: 135 UG OR 180 UG
     Route: 058
  2. RIBAVIRIN [Suspect]
     Indication: CHRONIC HEPATITIS C
     Dosage: 800-1200 MG/D, IN 2-3 ORAL DOSES
     Route: 048

REACTIONS (1)
  - Gastric cancer [Unknown]
